FAERS Safety Report 10360711 (Version 1)
Quarter: 2014Q3

REPORT INFORMATION
  Report Type: Spontaneous
  Country: DE (occurrence: DE)
  Receive Date: 20140804
  Receipt Date: 20140804
  Transmission Date: 20150326
  Serious: Yes (Other)
  Sender: FDA-Public Use
  Company Number: DE-TEVA-498411GER

PATIENT
  Age: 66 Year
  Sex: Male
  Weight: 69 kg

DRUGS (13)
  1. IRINOTECAN AWD 20 MG/ML [Suspect]
     Active Substance: IRINOTECAN
     Indication: RECTAL CANCER
     Dosage: ON DAY 1, EACH CYCLE REPEATED EVERY 14 DAYS
     Route: 042
     Dates: start: 20120614, end: 20130226
  2. FENISTIL [Concomitant]
     Active Substance: DIMETHINDENE
     Indication: PREMEDICATION
     Dosage: 1 DF IS ONE AMPOULE ON DAY 1
     Route: 042
  3. EMEND [Concomitant]
     Active Substance: APREPITANT
     Dosage: 160 MILLIGRAM DAILY; ON DAYS 1, 2, 3 EACH TIME 2X80MG
     Route: 048
  4. 5-FU [Suspect]
     Active Substance: FLUOROURACIL
     Dosage: ON DAY 1 AND 2
  5. ONDANSETRON [Concomitant]
     Active Substance: ONDANSETRON
     Indication: PREMEDICATION
     Dosage: ON DAY 1 AS REQUIRED
     Route: 042
  6. EMEND [Concomitant]
     Active Substance: APREPITANT
     Indication: PREMEDICATION
     Dosage: 125 MILLIGRAM DAILY; ON DAYS 1, 2, 3
     Route: 048
  7. DEXAMETHASON [Concomitant]
     Active Substance: DEXAMETHASONE
     Indication: PREMEDICATION
     Dosage: ON DAY 1
     Route: 042
  8. 5-FU [Suspect]
     Active Substance: FLUOROURACIL
     Indication: CHEMOTHERAPY
     Dates: start: 201011, end: 201106
  9. 5-FU [Suspect]
     Active Substance: FLUOROURACIL
     Indication: RECTAL CANCER
     Dosage: ON DAY 1
  10. CALCIUM FOLINATE [Concomitant]
     Active Substance: LEUCOVORIN CALCIUM
     Indication: RECTAL CANCER
     Dosage: ON DAY 1
  11. RANITIDIN [Concomitant]
     Active Substance: RANITIDINE HYDROCHLORIDE
     Indication: PREMEDICATION
     Dosage: 1 DF IS ONE AMPOULE ON DAY 1
     Route: 042
  12. CALCIUM FOLINATE [Concomitant]
     Active Substance: LEUCOVORIN CALCIUM
     Indication: CHEMOTHERAPY
     Dates: start: 201011, end: 201106
  13. ATROPINE [Concomitant]
     Active Substance: ATROPINE
     Indication: PREMEDICATION
     Dosage: 1 DOSAGE FORM CONTAINS A HALF OF AMPULE, ON DAY 1 AS REQUIRED
     Route: 058

REACTIONS (14)
  - Neutropenia [Recovered/Resolved]
  - Alopecia [Unknown]
  - Blood sodium decreased [Recovered/Resolved]
  - Muscular weakness [Recovered/Resolved]
  - Nervousness [Unknown]
  - Gamma-glutamyltransferase increased [Not Recovered/Not Resolved]
  - Diarrhoea [Unknown]
  - Blood alkaline phosphatase increased [Not Recovered/Not Resolved]
  - Pain in extremity [Recovered/Resolved]
  - Depression [Unknown]
  - Blood potassium increased [Recovered/Resolved]
  - Needle issue [Recovered/Resolved]
  - Rhinorrhoea [Recovered/Resolved]
  - Carbohydrate antigen 19-9 [Not Recovered/Not Resolved]

NARRATIVE: CASE EVENT DATE: 20120625
